FAERS Safety Report 21240999 (Version 1)
Quarter: 2022Q3

REPORT INFORMATION
  Report Type: Spontaneous
  Country: IN (occurrence: IN)
  Receive Date: 20220823
  Receipt Date: 20220823
  Transmission Date: 20221027
  Serious: Yes (Other)
  Sender: FDA-Public Use
  Company Number: IN-NATCOUSA-2022-NATCOUSA-000076

PATIENT
  Age: 42 Year
  Sex: Female

DRUGS (3)
  1. ERLOTINIB [Suspect]
     Active Substance: ERLOTINIB
     Indication: Hereditary leiomyomatosis renal cell carcinoma
     Dates: start: 201911
  2. BEVACIZUMAB [Suspect]
     Active Substance: BEVACIZUMAB
     Indication: Hereditary leiomyomatosis renal cell carcinoma
     Dosage: 500 MG AT 10 MG/KG
     Dates: start: 201911
  3. DOXYCYCLINE [Concomitant]
     Active Substance: DOXYCYCLINE
     Indication: Product used for unknown indication

REACTIONS (2)
  - Cholecystitis acute [Unknown]
  - Dermatitis acneiform [Unknown]
